FAERS Safety Report 24297165 (Version 1)
Quarter: 2024Q3

REPORT INFORMATION
  Report Type: Spontaneous
  Country: US (occurrence: US)
  Receive Date: 20240909
  Receipt Date: 20240909
  Transmission Date: 20241016
  Serious: No
  Sender: SANOFI AVENTIS
  Company Number: US-SA-2024SA256748

PATIENT
  Age: 78 Year
  Sex: Male

DRUGS (1)
  1. DUPIXENT [Suspect]
     Active Substance: DUPILUMAB
     Dosage: 300 MG, QOW
     Route: 058
     Dates: start: 20240627, end: 20240820

REACTIONS (5)
  - Skin discolouration [Unknown]
  - Back pain [Unknown]
  - Movement disorder [Unknown]
  - Feeling hot [Unknown]
  - Arthralgia [Unknown]

NARRATIVE: CASE EVENT DATE: 20240704
